FAERS Safety Report 10540344 (Version 2)
Quarter: 2014Q4

REPORT INFORMATION
  Report Type: Spontaneous
  Country: US (occurrence: US)
  Receive Date: 20141024
  Receipt Date: 20141024
  Transmission Date: 20150529
  Serious: Yes (Hospitalization)
  Sender: FDA-Public Use
  Company Number: US-INCYTE CORPORATION-2014IN002660

PATIENT
  Sex: Female

DRUGS (7)
  1. LEVAQUIN [Concomitant]
     Active Substance: LEVOFLOXACIN
  2. WARFARIN [Concomitant]
     Active Substance: WARFARIN
  3. PROCRIT [Concomitant]
     Active Substance: ERYTHROPOIETIN
  4. ZOFRAN                             /00955301/ [Concomitant]
     Active Substance: ONDANSETRON HYDROCHLORIDE
  5. MORPHINE [Concomitant]
     Active Substance: MORPHINE
  6. TRAMADOL [Concomitant]
     Active Substance: TRAMADOL
  7. JAKAFI [Suspect]
     Active Substance: RUXOLITINIB
     Indication: MYELOFIBROSIS
     Dosage: 5 MG, BID
     Route: 048

REACTIONS (4)
  - Asthenia [Recovering/Resolving]
  - Fall [Recovering/Resolving]
  - Rib fracture [Recovering/Resolving]
  - Disability [Recovering/Resolving]

NARRATIVE: CASE EVENT DATE: 2014
